FAERS Safety Report 12989658 (Version 2)
Quarter: 2016Q4

REPORT INFORMATION
  Report Type: Spontaneous
  Country: US (occurrence: US)
  Receive Date: 20161201
  Receipt Date: 20161211
  Transmission Date: 20170207
  Serious: Yes (Other)
  Sender: FDA-Public Use
  Company Number: US-AMGEN-USASP2016166208

PATIENT
  Age: 76 Year
  Sex: Female

DRUGS (12)
  1. PREDNISONE. [Concomitant]
     Active Substance: PREDNISONE
  2. BYDUREON [Concomitant]
     Active Substance: EXENATIDE
     Indication: DIABETES MELLITUS
     Dosage: UNK
  3. ZOLOFT [Concomitant]
     Active Substance: SERTRALINE HYDROCHLORIDE
     Indication: DEPRESSION
  4. SYNTHROID [Concomitant]
     Active Substance: LEVOTHYROXINE SODIUM
  5. ALBUTEROL. [Concomitant]
     Active Substance: ALBUTEROL
     Route: 055
  6. COREG [Concomitant]
     Active Substance: CARVEDILOL
  7. LANOXIN [Concomitant]
     Active Substance: DIGOXIN
  8. INDOMETHACIN. [Concomitant]
     Active Substance: INDOMETHACIN
  9. LISINOPRIL. [Concomitant]
     Active Substance: LISINOPRIL
  10. ENBREL [Suspect]
     Active Substance: ETANERCEPT
     Indication: ANKYLOSING SPONDYLITIS
     Dosage: UNK
     Route: 065
     Dates: start: 201611
  11. ZOLOFT [Concomitant]
     Active Substance: SERTRALINE HYDROCHLORIDE
     Indication: PALPITATIONS
  12. OMEPRAZOLE. [Concomitant]
     Active Substance: OMEPRAZOLE

REACTIONS (10)
  - Depression [Unknown]
  - Injection site pain [Unknown]
  - Suicidal ideation [Unknown]
  - Feeling abnormal [Unknown]
  - Feeling hot [Unknown]
  - Night sweats [Unknown]
  - Fatigue [Unknown]
  - Cold sweat [Unknown]
  - Underdose [Unknown]
  - Decreased appetite [Unknown]

NARRATIVE: CASE EVENT DATE: 201611
